FAERS Safety Report 21024668 (Version 1)
Quarter: 2022Q2

REPORT INFORMATION
  Report Type: Spontaneous
  Country: AU (occurrence: AU)
  Receive Date: 20220629
  Receipt Date: 20220629
  Transmission Date: 20220721
  Serious: Yes (Other)
  Sender: FDA-Public Use
  Company Number: AU-GLAXOSMITHKLINE-AUCH2022GSK022208

PATIENT

DRUGS (1)
  1. NICOTINELL [Suspect]
     Active Substance: NICOTINE
     Indication: Smoking cessation therapy
     Dosage: 18 DF, QD
     Dates: start: 2011

REACTIONS (5)
  - Overdose [Unknown]
  - Drug dependence [Unknown]
  - Hypertension [Unknown]
  - Incorrect product administration duration [Unknown]
  - Product taste abnormal [Unknown]
